FAERS Safety Report 5212640-0 (Version None)
Quarter: 2006Q4

REPORT INFORMATION
  Report Type: 
  Country: None (occurrence: None)
  Receive Date: 20061114
  Receipt Date: 20061003
  Transmission Date: 20070319
  Serious: No
  Sender: FDA-Public Use
  Company Number: S06-USA-04057-01

PATIENT
  Age: 75 Year
  Sex: Male

DRUGS (6)
  1. NAMENDA [Suspect]
     Indication: AMNESIA
     Dosage: 5 MG BID PO
     Route: 048
     Dates: start: 20060901
  2. NAMENDA [Suspect]
     Indication: AMNESIA
     Dosage: 5 MG QD PO
     Route: 048
     Dates: start: 20060901, end: 20060901
  3. CRESTOR [Concomitant]
  4. TOPROL-XL [Concomitant]
  5. AVAPRO [Concomitant]
  6. NEXIUM [Concomitant]

REACTIONS (1)
  - INSOMNIA [None]
